FAERS Safety Report 7281324-X (Version None)
Quarter: 2011Q1

REPORT INFORMATION
  Report Type: 
  Country: None (occurrence: None)
  Receive Date: 20110203
  Receipt Date: 20110203
  Transmission Date: 20110831
  Serious: No
  Sender: FDA-Public Use
  Company Number: None

PATIENT
  Age: 59 Year
  Sex: Female

DRUGS (9)
  1. OMEPRAZOLE [Concomitant]
  2. ALDACTONE [Concomitant]
  3. MIDODRINE HYDROCHLORIDE [Concomitant]
  4. INSULIN [Concomitant]
  5. LISINOPRIL [Concomitant]
  6. LASIX [Concomitant]
  7. LACTULOSE [Concomitant]
  8. LETAIRIS [Suspect]
     Indication: PULMONARY HYPERTENSION
     Dosage: 10MG DAILY ORALLY
     Route: 048
     Dates: start: 20101113, end: 20110125
  9. METFORMIN [Concomitant]

REACTIONS (3)
  - CHYLOTHORAX [None]
  - CONDITION AGGRAVATED [None]
  - HEPATIC CIRRHOSIS [None]
